FAERS Safety Report 6903013-0 (Version None)
Quarter: 2010Q3

REPORT INFORMATION
  Report Type: 
  Country: None (occurrence: None)
  Receive Date: 20100803
  Receipt Date: 20080725
  Transmission Date: 20110219
  Serious: No
  Sender: FDA-Public Use
  Company Number: US-PFIZER INC-2008062229

PATIENT
  Sex: Male
  Weight: 109.1 kg

DRUGS (2)
  1. LYRICA [Suspect]
     Indication: PAIN
  2. ALEVE (CAPLET) [Concomitant]

REACTIONS (1)
  - PAIN [None]
